FAERS Safety Report 7684854-1 (Version None)
Quarter: 2011Q3

REPORT INFORMATION
  Report Type: 
  Country: None (occurrence: None)
  Receive Date: 20110816
  Receipt Date: 20110728
  Transmission Date: 20111222
  Serious: No
  Sender: FDA-Public Use
  Company Number: US-BAYER-2011-068345

PATIENT
  Sex: Male

DRUGS (2)
  1. ALEVE (CAPLET) [Suspect]
     Indication: ARTHRITIS
     Dosage: 220 MG, QD
     Route: 048
     Dates: start: 20110528
  2. ASPIRIN [Concomitant]
     Dosage: UNK UNK, PRN

REACTIONS (1)
  - NAUSEA [None]
